FAERS Safety Report 8228228-3 (Version None)
Quarter: 2012Q1

REPORT INFORMATION
  Report Type: 
  Country: None (occurrence: None)
  Receive Date: 20120307
  Receipt Date: 20100714
  Transmission Date: 20120608
  Serious: Yes (Other)
  Sender: FDA-Public Use
  Company Number: PHHY2010US43526

PATIENT
  Age: 55 Year
  Sex: Male
  Weight: 101.6 kg

DRUGS (1)
  1. AFINITOR [Suspect]
     Indication: METASTATIC RENAL CELL CARCINOMA
     Dosage: 10 MG, DAILY, ORAL; 5 MG, ORAL
     Route: 048
     Dates: start: 20090914, end: 20091212

REACTIONS (2)
  - DIABETES MELLITUS [None]
  - HYPERLIPIDAEMIA [None]
